FAERS Safety Report 19985098 (Version 2)
Quarter: 2021Q4

REPORT INFORMATION
  Report Type: Spontaneous
  Country: AT (occurrence: AT)
  Receive Date: 20211021
  Receipt Date: 20211109
  Transmission Date: 20220303
  Serious: Yes (Other)
  Sender: FDA-Public Use
  Company Number: AT-TEVA-2021-AT-1966759

PATIENT
  Age: 44 Year
  Sex: Male

DRUGS (5)
  1. TRAMADOL [Interacting]
     Active Substance: TRAMADOL
     Indication: Suicide attempt
     Route: 065
  2. CHLOROQUINE [Suspect]
     Active Substance: CHLOROQUINE
     Indication: Suicide attempt
     Route: 048
  3. DIAZEPAM [Interacting]
     Active Substance: DIAZEPAM
     Indication: Suicide attempt
     Route: 048
  4. TEMAZEPAM [Interacting]
     Active Substance: TEMAZEPAM
     Indication: Suicide attempt
     Route: 065
  5. METOCLOPRAMIDE [Concomitant]
     Active Substance: METOCLOPRAMIDE
     Indication: Suicide attempt
     Route: 048

REACTIONS (3)
  - Toxicity to various agents [Unknown]
  - Overdose [Unknown]
  - Drug interaction [Unknown]
